FAERS Safety Report 7722589-7 (Version None)
Quarter: 2011Q3

REPORT INFORMATION
  Report Type: 
  Country: None (occurrence: None)
  Receive Date: 20110831
  Receipt Date: 20110822
  Transmission Date: 20111222
  Serious: Yes (Hospitalization)
  Sender: FDA-Public Use
  Company Number: JP-B.I. PHARMACEUTICALS,INC./RIDGEFIELD-2011-BP-20577NB

PATIENT
  Sex: Male

DRUGS (10)
  1. SEREVENT [Concomitant]
     Dates: start: 20100622, end: 20100720
  2. YODEL-S [Concomitant]
     Route: 065
     Dates: start: 20110226, end: 20110311
  3. ROHYPNOL [Concomitant]
     Dates: start: 20110305, end: 20110307
  4. ARICEPT [Concomitant]
     Dates: start: 20110310, end: 20110506
  5. LEVOFLOXACIN [Concomitant]
     Dates: start: 20110228, end: 20110310
  6. AMOXAPINE [Concomitant]
     Dates: start: 20110226, end: 20110408
  7. TELMISARTAN AND HYDROCHLOROTHIAZIDE [Suspect]
     Indication: HYPERTENSION
     Dosage: 1DF, TELMISARTAN40MG+HYDROCHLOROTHIAZIDE12.5MG
     Route: 048
     Dates: start: 20100608, end: 20110516
  8. DEPAS [Concomitant]
     Dates: start: 20110104, end: 20110201
  9. ARICEPT [Concomitant]
     Dates: start: 20110507, end: 20110516
  10. MEPTIN AIR [Concomitant]
     Dates: start: 20110409, end: 20110516

REACTIONS (1)
  - HOSPITALISATION [None]
